FAERS Safety Report 6942102-1 (Version None)
Quarter: 2010Q3

REPORT INFORMATION
  Report Type: 
  Country: None (occurrence: None)
  Receive Date: 20100823
  Receipt Date: 20100809
  Transmission Date: 20110219
  Serious: No
  Sender: FDA-Public Use
  Company Number: 010156

PATIENT
  Age: 77 Year
  Sex: Female
  Weight: 35.5 kg

DRUGS (11)
  1. PLETAL [Suspect]
     Indication: ARTERIAL OCCLUSIVE DISEASE
     Dosage: 50 MG, BID ORAL
     Route: 048
     Dates: start: 20090201, end: 20100629
  2. ASPIRIN [Concomitant]
  3. PARIET (SODIUM RABEPRAZOLE) TABLET [Concomitant]
  4. LIPITOR [Concomitant]
  5. SIGMART (NICORANDIL) [Concomitant]
  6. ADALATE (NIFEDIPINE) TABLET [Concomitant]
  7. DIOVAN [Concomitant]
  8. METHYCOBAL (MECOBALAMIN) [Concomitant]
  9. KINEDAK (EPALRESTAT) TABLET [Concomitant]
  10. NOVORAPID (INSULIN ASPART) INJECTION [Concomitant]
  11. LANTUS [Concomitant]

REACTIONS (3)
  - AGRANULOCYTOSIS [None]
  - LEUKAEMIA [None]
  - THROMBOCYTOPENIA [None]
